FAERS Safety Report 8689248 (Version 4)
Quarter: 2013Q2

REPORT INFORMATION
  Report Type: Spontaneous
  Country: US (occurrence: US)
  Receive Date: 20120727
  Receipt Date: 20130419
  Transmission Date: 20140414
  Serious: Yes (Hospitalization)
  Sender: FDA-Public Use
  Company Number: US-ASTRAZENECA-2011SE75364

PATIENT
  Age: 26 Year
  Sex: Female
  Weight: 85.3 kg

DRUGS (22)
  1. SEROQUEL XR [Suspect]
     Indication: DEPRESSION
     Route: 048
  2. SEROQUEL XR [Suspect]
     Indication: BIPOLAR DISORDER
     Route: 048
  3. SEROQUEL XR [Suspect]
     Indication: POST-TRAUMATIC STRESS DISORDER
     Route: 048
  4. SEROQUEL XR [Suspect]
     Indication: SLEEP DISORDER
     Route: 048
  5. SEROQUEL XR [Suspect]
     Indication: DEPRESSION
     Route: 048
     Dates: start: 2010
  6. SEROQUEL XR [Suspect]
     Indication: BIPOLAR DISORDER
     Route: 048
     Dates: start: 2010
  7. SEROQUEL XR [Suspect]
     Indication: POST-TRAUMATIC STRESS DISORDER
     Route: 048
     Dates: start: 2010
  8. SEROQUEL XR [Suspect]
     Indication: SLEEP DISORDER
     Route: 048
     Dates: start: 2010
  9. SEROQUEL XR [Suspect]
     Indication: DEPRESSION
     Route: 048
  10. SEROQUEL XR [Suspect]
     Indication: BIPOLAR DISORDER
     Route: 048
  11. SEROQUEL XR [Suspect]
     Indication: POST-TRAUMATIC STRESS DISORDER
     Route: 048
  12. SEROQUEL XR [Suspect]
     Indication: SLEEP DISORDER
     Route: 048
  13. SEROQUEL XR [Suspect]
     Indication: DEPRESSION
     Route: 048
  14. SEROQUEL XR [Suspect]
     Indication: BIPOLAR DISORDER
     Route: 048
  15. SEROQUEL XR [Suspect]
     Indication: POST-TRAUMATIC STRESS DISORDER
     Route: 048
  16. SEROQUEL XR [Suspect]
     Indication: SLEEP DISORDER
     Route: 048
  17. AMBIEN [Concomitant]
     Indication: SLEEP DISORDER
     Route: 048
     Dates: start: 2010
  18. XANAX [Concomitant]
     Indication: ANXIETY
     Dates: start: 2010
  19. PAXIL [Concomitant]
     Indication: DEPRESSION
     Route: 048
     Dates: start: 2010, end: 2012
  20. WELLBUTRIN [Concomitant]
     Route: 048
     Dates: start: 2011, end: 2012
  21. VISTARIL [Concomitant]
     Indication: ANXIETY
     Dosage: QID
     Route: 048
     Dates: start: 2010, end: 2012
  22. BACLOFEN [Concomitant]
     Indication: CYSTITIS INTERSTITIAL
     Route: 048
     Dates: start: 201201

REACTIONS (12)
  - Pneumonia [Unknown]
  - Malaise [Unknown]
  - Insomnia [Unknown]
  - Elevated mood [Unknown]
  - Panic reaction [Unknown]
  - Anxiety [Unknown]
  - Chills [Unknown]
  - Feeling hot [Unknown]
  - Drug withdrawal syndrome [Unknown]
  - Off label use [Unknown]
  - Intentional drug misuse [Unknown]
  - Drug dose omission [Unknown]
